FAERS Safety Report 5277916-X (Version None)
Quarter: 2007Q1

REPORT INFORMATION
  Report Type: 
  Country: None (occurrence: None)
  Receive Date: 20070321
  Receipt Date: 20070308
  Transmission Date: 20070707
  Serious: Yes (Death)
  Sender: FDA-Public Use
  Company Number: 233106

PATIENT
  Age: 75 Year
  Sex: Male
  Weight: 57 kg

DRUGS (6)
  1. AVASTIN [Suspect]
     Indication: RECTAL CANCER
     Dosage: 5 MG/KG, 1/WEEK, INTRAVENOUS
     Route: 042
     Dates: start: 20060711, end: 20060724
  2. AVASTIN [Suspect]
     Indication: RECTAL CANCER
     Dosage: 5 MG/KG, 1/WEEK, INTRAVENOUS
     Route: 042
     Dates: start: 20060807, end: 20060821
  3. OXALIPLATIN [Suspect]
     Indication: RECTAL CANCER
     Dosage: 40 MG/M2, 1/WEEK, INTRAVENOUS
     Route: 042
     Dates: start: 20060711, end: 20060724
  4. OXALIPLATIN [Suspect]
     Indication: RECTAL CANCER
     Dosage: 40 MG/M2, 1/WEEK, INTRAVENOUS
     Route: 042
     Dates: start: 20060807, end: 20060821
  5. FLUOROURACIL [Suspect]
     Indication: RECTAL CANCER
     Dosage: MG/M2, 1/WEEK
     Dates: start: 20060711, end: 20060724
  6. FLUOROURACIL [Suspect]
     Indication: RECTAL CANCER
     Dosage: MG/M2, 1/WEEK
     Dates: start: 20060807

REACTIONS (4)
  - ARTERIOSCLEROSIS CORONARY ARTERY [None]
  - FALL [None]
  - FATIGUE [None]
  - SUDDEN DEATH [None]
